FAERS Safety Report 9461176 (Version 1)
Quarter: 2013Q3

REPORT INFORMATION
  Report Type: Spontaneous
  Country: US (occurrence: None)
  Receive Date: 20130814
  Receipt Date: 20130814
  Transmission Date: 20140515
  Serious: No
  Sender: FDA-Public Use
  Company Number: None

PATIENT
  Age: 58 Year
  Sex: Male
  Weight: 95.26 kg

DRUGS (2)
  1. PRAVASTATIN [Suspect]
     Indication: BLOOD CHOLESTEROL ABNORMAL
     Dosage: 1 TAB ONE PER DAY ??3/25/2013-APRIL 25
     Dates: start: 20130325, end: 20130425
  2. SIMVASTATIN [Suspect]
     Indication: BLOOD CHOLESTEROL ABNORMAL
     Dosage: 1TAB ONE PER DAY ?APRIL 10TH/ MAY UNKNOWN

REACTIONS (6)
  - Myalgia [None]
  - Movement disorder [None]
  - Blister [None]
  - Haemorrhage [None]
  - Confusional state [None]
  - Amnesia [None]
